FAERS Safety Report 13212757 (Version 2)
Quarter: 2017Q1

REPORT INFORMATION
  Report Type: Spontaneous
  Country: DE (occurrence: DE)
  Receive Date: 20170210
  Receipt Date: 20170320
  Transmission Date: 20170428
  Serious: Yes (Death, Other)
  Sender: FDA-Public Use
  Company Number: DE-ALEXION PHARMACEUTICALS INC-A201701065

PATIENT
  Sex: Female

DRUGS (1)
  1. SOLIRIS [Suspect]
     Active Substance: ECULIZUMAB
     Indication: HAEMOLYTIC URAEMIC SYNDROME
     Dosage: 600 MG, UNK
     Route: 042
     Dates: start: 20170105

REACTIONS (4)
  - Cytomegalovirus infection [Fatal]
  - Thrombotic microangiopathy [Fatal]
  - Pneumonia [Fatal]
  - Multiple organ dysfunction syndrome [Fatal]
